FAERS Safety Report 23490353 (Version 1)
Quarter: 2024Q1

REPORT INFORMATION
  Report Type: Spontaneous
  Country: FR (occurrence: FR)
  Receive Date: 20240206
  Receipt Date: 20240206
  Transmission Date: 20240410
  Serious: Yes (Hospitalization)
  Sender: FDA-Public Use
  Company Number: None

PATIENT
  Age: 48 Year
  Sex: Male

DRUGS (5)
  1. PEMBROLIZUMAB [Suspect]
     Active Substance: PEMBROLIZUMAB
     Indication: Squamous cell carcinoma
     Dosage: 12 CURES IN TOTAL FROM 03/09/2023 TO 11/28/2023
     Route: 042
     Dates: start: 20230309, end: 20231129
  2. CETUXIMAB [Suspect]
     Active Substance: CETUXIMAB
     Indication: Squamous cell carcinoma
     Dosage: 625 MG FOR C1
     Route: 042
     Dates: start: 20231206, end: 20231206
  3. CETUXIMAB [Suspect]
     Active Substance: CETUXIMAB
     Dosage: 390 MG FOR C2
     Route: 042
     Dates: start: 20231214, end: 20231214
  4. CETUXIMAB [Suspect]
     Active Substance: CETUXIMAB
     Dosage: 390 MG FOR C3
     Route: 042
     Dates: start: 20231221, end: 20231221
  5. CETUXIMAB [Suspect]
     Active Substance: CETUXIMAB
     Dosage: 390 MG FOR C4
     Route: 042
     Dates: start: 20231229, end: 20231229

REACTIONS (1)
  - Extremity necrosis [Not Recovered/Not Resolved]

NARRATIVE: CASE EVENT DATE: 20231229
